FAERS Safety Report 14713196 (Version 2)
Quarter: 2018Q2

REPORT INFORMATION
  Report Type: Spontaneous
  Country: US (occurrence: US)
  Receive Date: 20180404
  Receipt Date: 20180419
  Transmission Date: 20180711
  Serious: No
  Sender: FDA-Public Use
  Company Number: US-PFIZER INC-2018135641

PATIENT
  Sex: Female
  Weight: 45.35 kg

DRUGS (2)
  1. ADVIL LIQUI-GELS [Suspect]
     Active Substance: IBUPROFEN
     Indication: BACK PAIN
     Dosage: 2 DF, EVERY 4 TO 6 HOURS
  2. ADVIL LIQUI-GELS [Suspect]
     Active Substance: IBUPROFEN
     Indication: DYSMENORRHOEA
     Dosage: 2 DF, EVERY 4 TO 6 HOURS

REACTIONS (2)
  - Drug effect decreased [Recovered/Resolved]
  - Drug effect delayed [Recovered/Resolved]
